FAERS Safety Report 7023636-0 (Version None)
Quarter: 2010Q3

REPORT INFORMATION
  Report Type: 
  Country: None (occurrence: None)
  Receive Date: 20100930
  Receipt Date: 20100930
  Transmission Date: 20110219
  Serious: Yes (Hospitalization)
  Sender: FDA-Public Use
  Company Number: None

PATIENT
  Age: 43 Year
  Sex: Male
  Weight: 80.1 kg

DRUGS (1)
  1. OCTAGAM [Suspect]
     Indication: MULTIPLE SCLEROSIS
     Dosage: 400MG/KG = 35GM DAILY X 5 DAYS IV
     Route: 042
     Dates: start: 20100913, end: 20100917

REACTIONS (1)
  - PULMONARY EMBOLISM [None]
